FAERS Safety Report 5402593-4 (Version None)
Quarter: 2007Q3

REPORT INFORMATION
  Report Type: 
  Country: None (occurrence: None)
  Receive Date: 20070801
  Receipt Date: 20070316
  Transmission Date: 20080115
  Serious: No
  Sender: FDA-Public Use
  Company Number: A0638164A

PATIENT
  Age: 39 Year
  Sex: Female

DRUGS (8)
  1. IMITREX [Suspect]
     Indication: MIGRAINE
     Dosage: 100MG SINGLE DOSE
     Route: 048
     Dates: start: 20070112, end: 20070112
  2. CELEBREX [Concomitant]
  3. NEXIUM [Concomitant]
  4. ELAVIL [Concomitant]
  5. FLEXERIL [Concomitant]
  6. WELLBUTRIN XL [Concomitant]
  7. ASPIRIN [Concomitant]
  8. MIDRIN [Concomitant]

REACTIONS (1)
  - SENSATION OF PRESSURE [None]
